FAERS Safety Report 4973645-8 (Version None)
Quarter: 2006Q2

REPORT INFORMATION
  Report Type: 
  Country: None (occurrence: None)
  Receive Date: 20060414
  Receipt Date: 20060109
  Transmission Date: 20061013
  Serious: Yes (Life-Threatening, Hospitalization)
  Sender: FDA-Public Use
  Company Number: DE-MERCK-0601DEU00021

PATIENT
  Age: 79 Year
  Sex: Male
  Weight: 71 kg

DRUGS (2)
  1. FOSAMAX [Suspect]
     Indication: OSTEOPOROSIS
     Route: 048
     Dates: end: 20051101
  2. ASPIRIN [Suspect]
     Indication: ARTERIOSCLEROSIS
     Route: 048
     Dates: end: 20051101

REACTIONS (11)
  - ANAEMIA [None]
  - CIRCULATORY COLLAPSE [None]
  - DIZZINESS [None]
  - DUODENITIS [None]
  - DYSPNOEA [None]
  - ERYSIPELAS [None]
  - GASTRIC ULCER [None]
  - HAEMORRHOIDS [None]
  - HYPERTENSION [None]
  - LOSS OF CONSCIOUSNESS [None]
  - TACHYCARDIA [None]
